FAERS Safety Report 6877492-1 (Version None)
Quarter: 2010Q3

REPORT INFORMATION
  Report Type: 
  Country: None (occurrence: None)
  Receive Date: 20100727
  Receipt Date: 20091020
  Transmission Date: 20110219
  Serious: No
  Sender: FDA-Public Use
  Company Number: US-ABBOTT-09P-163-0604596-00

PATIENT
  Sex: Female
  Weight: 86.26 kg

DRUGS (5)
  1. SYNTHROID [Suspect]
     Indication: HYPOTHYROIDISM
     Dosage: VARIOUS DOSES
     Dates: start: 19980101
  2. SYNTHROID [Suspect]
  3. SYNTHROID [Suspect]
     Dates: start: 20020101
  4. METOPROLOL [Concomitant]
     Indication: HYPERTENSION
  5. DOXYCYCLINE [Concomitant]
     Indication: ROSACEA

REACTIONS (2)
  - PRURITUS [None]
  - RASH [None]
